FAERS Safety Report 6510050-7 (Version None)
Quarter: 2009Q4

REPORT INFORMATION
  Report Type: 
  Country: None (occurrence: None)
  Receive Date: 20091217
  Receipt Date: 20091203
  Transmission Date: 20100525
  Serious: Yes (Hospitalization)
  Sender: FDA-Public Use
  Company Number: 008220

PATIENT
  Age: 81 Year
  Sex: Male

DRUGS (6)
  1. CILOSTAZOL [Suspect]
     Indication: ISCHAEMIA
     Dosage: 100 MG, BID ORAL
     Route: 048
  2. ASPIRIN [Concomitant]
  3. CLOPIDOGREL [Concomitant]
  4. DIAZEPAM [Concomitant]
  5. HUMAN MIXTARD (INSULIN HUMAN, INSULIN HUMAN INJECTION, ISOPHANE) [Concomitant]
  6. VENLAFAXINE HCL [Concomitant]

REACTIONS (3)
  - CARDIAC FAILURE [None]
  - CONDITION AGGRAVATED [None]
  - PERIPHERAL ISCHAEMIA [None]
